FAERS Safety Report 18703261 (Version 2)
Quarter: 2021Q1

REPORT INFORMATION
  Report Type: Spontaneous
  Country: JP (occurrence: JP)
  Receive Date: 20210105
  Receipt Date: 20210126
  Transmission Date: 20210419
  Serious: Yes (Other)
  Sender: FDA-Public Use
  Company Number: JP-PFIZER INC-2020515074

PATIENT
  Age: 82 Year
  Sex: Male
  Weight: 55.4 kg

DRUGS (2)
  1. ANAEMETRO [Suspect]
     Active Substance: METRONIDAZOLE
     Dosage: 500 MG, 2X/DAY
     Route: 041
     Dates: start: 20201209, end: 20201218
  2. ROCEPHIN [Suspect]
     Active Substance: CEFTRIAXONE SODIUM
     Dosage: UNK

REACTIONS (2)
  - Intestinal dilatation [Unknown]
  - Megacolon [Unknown]
